FAERS Safety Report 7152520-7 (Version None)
Quarter: 2010Q4

REPORT INFORMATION
  Report Type: 
  Country: None (occurrence: None)
  Receive Date: 20101213
  Receipt Date: 20101130
  Transmission Date: 20110411
  Serious: Yes (Hospitalization)
  Sender: FDA-Public Use
  Company Number: US-CELGENEUS-163-20785-10110937

PATIENT
  Sex: Male

DRUGS (12)
  1. THALOMID [Suspect]
     Indication: ACUTE MONOCYTIC LEUKAEMIA
     Route: 048
     Dates: start: 20100412
  2. ACYCLOVIR SODIUM [Concomitant]
     Route: 065
  3. ADVAIR DISKUS 100/50 [Concomitant]
     Route: 065
  4. GABAPENTIN [Concomitant]
     Route: 065
  5. GENGRAF [Concomitant]
     Route: 065
  6. PREDNISONE [Concomitant]
     Route: 065
  7. VALTREX [Concomitant]
     Route: 065
  8. NORVASC [Concomitant]
     Route: 065
  9. COREG [Concomitant]
     Route: 065
  10. NOVOLIN N [Concomitant]
     Route: 065
  11. TRICOR [Concomitant]
     Route: 065
  12. VYTORIN [Concomitant]
     Route: 065

REACTIONS (2)
  - ARTERIAL OCCLUSIVE DISEASE [None]
  - CARDIAC FAILURE CONGESTIVE [None]
